FAERS Safety Report 9350358 (Version 1)
Quarter: 2013Q2

REPORT INFORMATION
  Report Type: Spontaneous
  Country: GB (occurrence: GB)
  Receive Date: 20130617
  Receipt Date: 20130617
  Transmission Date: 20140414
  Serious: Yes (Other)
  Sender: FDA-Public Use
  Company Number: GB-JNJFOC-20130602578

PATIENT
  Age: 14 Year
  Sex: Male

DRUGS (2)
  1. CONCERTA XL [Suspect]
     Indication: ATTENTION DEFICIT/HYPERACTIVITY DISORDER
     Route: 048
  2. CONCERTA XL [Suspect]
     Indication: ATTENTION DEFICIT/HYPERACTIVITY DISORDER
     Route: 048

REACTIONS (1)
  - Neutropenia [Recovered/Resolved]
